FAERS Safety Report 7366348-6 (Version None)
Quarter: 2011Q1

REPORT INFORMATION
  Report Type: 
  Country: None (occurrence: None)
  Receive Date: 20110322
  Receipt Date: 20110308
  Transmission Date: 20110831
  Serious: Yes (Hospitalization)
  Sender: FDA-Public Use
  Company Number: US-JNJFOC-20090205823

PATIENT
  Sex: Male
  Weight: 65.5 kg

DRUGS (7)
  1. INFLIXIMAB [Suspect]
     Dosage: RECEIVED 3 INFUSIONS
     Route: 042
  2. CORTIFOAM [Concomitant]
     Route: 054
  3. INFLIXIMAB [Suspect]
     Route: 042
  4. INFLIXIMAB [Suspect]
     Indication: COLITIS
     Dosage: RECEIVED 3 INFUSIONS
     Route: 042
  5. INFLIXIMAB [Suspect]
     Indication: INFLAMMATORY BOWEL DISEASE
     Dosage: RECEIVED 3 INFUSIONS
     Route: 042
  6. INFLIXIMAB [Suspect]
     Route: 042
  7. INFLIXIMAB [Suspect]
     Indication: COLITIS ULCERATIVE
     Route: 042

REACTIONS (5)
  - SMALL INTESTINAL OBSTRUCTION [None]
  - COLECTOMY TOTAL [None]
  - DIARRHOEA [None]
  - HAEMORRHAGE [None]
  - PAIN [None]
